FAERS Safety Report 16009289 (Version 3)
Quarter: 2020Q4

REPORT INFORMATION
  Report Type: Report from Study
  Country: None (occurrence: FI)
  Receive Date: 20190226
  Receipt Date: 20201005
  Transmission Date: 20210113
  Serious: Yes (Hospitalization, Other)
  Sender: FDA-Public Use
  Company Number: FI-ABBVIE-19S-055-2677791-00

PATIENT
  Sex: Male

DRUGS (9)
  1. BETMIGA [Concomitant]
     Active Substance: MIRABEGRON
     Indication: PAIN
     Route: 048
     Dates: end: 201902
  2. SIRDALUD [Concomitant]
     Active Substance: TIZANIDINE
     Indication: PARKINSON^S DISEASE
  3. DUODOPA [Suspect]
     Active Substance: CARBIDOPA\LEVODOPA
     Dosage: MD CURRENTLY NOT GIVEN; DAY 3.7 ML/H; NIGHT 2.4 ML/H; ED 1 ML; 24 H TREATMENT
     Route: 050
     Dates: start: 2019
  4. SIRDALUD [Concomitant]
     Active Substance: TIZANIDINE
     Indication: PAIN
     Dosage: SMALL DOSES
     Route: 048
     Dates: end: 201902
  5. LYRICA [Concomitant]
     Active Substance: PREGABALIN
     Indication: PARKINSON^S DISEASE
     Dosage: SMALL DOSES
     Route: 048
     Dates: end: 201902
  6. BETMIGA [Concomitant]
     Active Substance: MIRABEGRON
     Indication: PARKINSON^S DISEASE
  7. DUODOPA [Suspect]
     Active Substance: CARBIDOPA\LEVODOPA
     Dosage: MAYBE 1.7 ML AND 1.3 ML, 24 H TREATMENT, NO BOLUS DOSE
     Route: 050
     Dates: start: 20200919
  8. LYRICA [Concomitant]
     Active Substance: PREGABALIN
     Indication: PAIN
  9. DUODOPA [Suspect]
     Active Substance: CARBIDOPA\LEVODOPA
     Indication: PARKINSON^S DISEASE
     Dosage: MD 4.5 ML; DAY 3.7 ML/H; NIGHT 2.4 ML/H; ED 1 ML; 24 H TREATMENT
     Route: 050
     Dates: start: 201511, end: 2019

REACTIONS (14)
  - Fall [Recovering/Resolving]
  - Musculoskeletal stiffness [Recovered/Resolved]
  - Skull fracture [Recovered/Resolved]
  - Musculoskeletal pain [Recovered/Resolved]
  - Facial bones fracture [Recovering/Resolving]
  - Facial bones fracture [Recovered/Resolved]
  - Fall [Recovered/Resolved]
  - Cerebral haemorrhage [Recovered/Resolved]
  - Device issue [Unknown]
  - Device issue [Unknown]
  - Fall [Recovered/Resolved]
  - Head injury [Recovering/Resolving]
  - Pneumonia [Recovering/Resolving]
  - Fall [Recovered/Resolved]

NARRATIVE: CASE EVENT DATE: 2018
